FAERS Safety Report 22863421 (Version 4)
Quarter: 2024Q1

REPORT INFORMATION
  Report Type: Report from Study
  Country: US (occurrence: US)
  Receive Date: 20230824
  Receipt Date: 20240322
  Transmission Date: 20240410
  Serious: No
  Sender: FDA-Public Use
  Company Number: US-ACADIA PHARMACEUTICALS INC.-ACA-2023-PIM-003269

PATIENT
  Sex: Female

DRUGS (1)
  1. NUPLAZID [Suspect]
     Active Substance: PIMAVANSERIN TARTRATE
     Indication: Parkinson^s disease psychosis
     Dosage: 34 MILLIGRAM, QD
     Route: 048
     Dates: start: 202307

REACTIONS (5)
  - Rapid eye movement sleep behaviour disorder [Not Recovered/Not Resolved]
  - Nausea [Recovered/Resolved]
  - Hallucination, visual [Recovered/Resolved]
  - Nausea [Unknown]
  - Constipation [Unknown]
